FAERS Safety Report 9705840 (Version 2)
Quarter: 2013Q4

REPORT INFORMATION
  Report Type: Spontaneous
  Country: US (occurrence: US)
  Receive Date: 20131122
  Receipt Date: 20131122
  Transmission Date: 20140711
  Serious: No
  Sender: FDA-Public Use
  Company Number: US-GILEAD-2008-0018021

PATIENT
  Sex: Female
  Weight: 70.76 kg

DRUGS (14)
  1. LETAIRIS [Suspect]
     Indication: PULMONARY ARTERIAL HYPERTENSION
     Route: 048
     Dates: start: 20080905
  2. LETAIRIS [Suspect]
     Route: 048
     Dates: start: 20080516, end: 20080904
  3. REVATIO [Concomitant]
     Route: 048
  4. K-DUR [Concomitant]
     Route: 048
  5. NEOMYCIN [Concomitant]
     Route: 048
  6. DARVOCET-N [Concomitant]
     Route: 048
  7. SUCRALFATE [Concomitant]
     Route: 048
  8. BELLADONNA W/PHENOBARB [Concomitant]
     Route: 048
  9. NEXIUM [Concomitant]
     Route: 048
  10. LASIX [Concomitant]
     Route: 048
  11. SPIRONOLACTONE [Concomitant]
     Route: 048
  12. PROMETHAZINE VC [Concomitant]
     Dosage: 6.25-5/5
     Route: 048
  13. ULTRAM [Concomitant]
     Route: 048
  14. OXYGEN [Concomitant]

REACTIONS (2)
  - Diarrhoea [Recovered/Resolved]
  - Pain [Recovered/Resolved]
